FAERS Safety Report 5104154-3 (Version None)
Quarter: 2006Q3

REPORT INFORMATION
  Report Type: 
  Country: None (occurrence: None)
  Receive Date: 20060911
  Receipt Date: 20060830
  Transmission Date: 20061208
  Serious: Yes (Disabling)
  Sender: FDA-Public Use
  Company Number: 2006-147402-NL

PATIENT
  Age: 49 Year
  Sex: Female

DRUGS (5)
  1. MIRTAZAPINE [Suspect]
     Dosage: DF ORAL
     Route: 048
  2. PARACETAMOL [Suspect]
     Indication: GENERAL SYMPTOM
     Dosage: DF ORAL
     Route: 048
  3. BROMAZEPAM [Suspect]
     Indication: ANXIETY
     Dosage: DF ORAL
     Route: 048
  4. PEGASYS [Suspect]
     Indication: HEPATITIS C
     Dosage: DF SUBCUTANEOUS
     Route: 058
     Dates: start: 20050115, end: 20050815
  5. RIBAVIRIN [Suspect]
     Indication: HEPATITIS C
     Dosage: DF ORAL
     Route: 048
     Dates: start: 20050115, end: 20050815

REACTIONS (1)
  - LIVIDITY [None]
